FAERS Safety Report 6099310-4 (Version None)
Quarter: 2009Q1

REPORT INFORMATION
  Report Type: 
  Country: None (occurrence: None)
  Receive Date: 20090303
  Receipt Date: 20090223
  Transmission Date: 20090719
  Serious: Yes (Other)
  Sender: FDA-Public Use
  Company Number: US-JNJFOC-20090206029

PATIENT
  Sex: Female
  Weight: 70.31 kg

DRUGS (5)
  1. DURAGESIC-100 [Suspect]
     Dosage: TWO 100 MCG/HR PATCHES
     Route: 062
  2. DURAGESIC-100 [Suspect]
     Indication: PAIN
     Dosage: THREE 100 MCG/HR PATCHES
     Route: 062
  3. VALIUM [Concomitant]
     Route: 048
  4. AMBIEN [Concomitant]
     Route: 048
  5. UNSPECIFIED SLEEPING AGENTS [Concomitant]
     Route: 065

REACTIONS (11)
  - ABDOMINAL PAIN UPPER [None]
  - ALOPECIA [None]
  - BEDRIDDEN [None]
  - DRUG EFFECT DECREASED [None]
  - DRUG PRESCRIBING ERROR [None]
  - FALL [None]
  - FOOT FRACTURE [None]
  - NERVOUSNESS [None]
  - TREATMENT NONCOMPLIANCE [None]
  - WEIGHT DECREASED [None]
  - WITHDRAWAL SYNDROME [None]
